FAERS Safety Report 6313964-6 (Version None)
Quarter: 2009Q3

REPORT INFORMATION
  Report Type: 
  Country: None (occurrence: None)
  Receive Date: 20090818
  Receipt Date: 20090807
  Transmission Date: 20100115
  Serious: Yes (Other)
  Sender: FDA-Public Use
  Company Number: PHEH2009US09007

PATIENT
  Sex: Female

DRUGS (1)
  1. ZADITOR [Suspect]

REACTIONS (2)
  - HALLUCINATION, VISUAL [None]
  - VISUAL IMPAIRMENT [None]
